FAERS Safety Report 19266368 (Version 1)
Quarter: 2021Q2

REPORT INFORMATION
  Report Type: Spontaneous
  Country: FR (occurrence: FR)
  Receive Date: 20210518
  Receipt Date: 20210518
  Transmission Date: 20210717
  Serious: Yes (Hospitalization, Other)
  Sender: FDA-Public Use
  Company Number: FR-TEVA-2021-FR-1911390

PATIENT
  Age: 52 Year
  Sex: Male
  Weight: 104 kg

DRUGS (17)
  1. CALCIFEROL [Concomitant]
  2. VITAMINE B12 [Concomitant]
     Active Substance: CYANOCOBALAMIN
  3. SMECTA [Concomitant]
     Active Substance: MONTMORILLONITE
  4. XATRAL [Concomitant]
     Active Substance: ALFUZOSIN
  5. BACLOFENE [Concomitant]
     Active Substance: BACLOFEN
  6. LASILIX [Suspect]
     Active Substance: FUROSEMIDE
     Indication: HYPERTENSION
  7. LYRICA [Concomitant]
     Active Substance: PREGABALIN
  8. LASILIX [Suspect]
     Active Substance: FUROSEMIDE
     Indication: OEDEMA PERIPHERAL
     Route: 048
     Dates: end: 20190510
  9. ROSUVASTATINE [Concomitant]
     Active Substance: ROSUVASTATIN
  10. BISOPROLOL [Concomitant]
     Active Substance: BISOPROLOL
  11. DULOXETINE. [Concomitant]
     Active Substance: DULOXETINE
  12. RAMIPRIL. [Suspect]
     Active Substance: RAMIPRIL
     Indication: HYPERTENSION
     Dosage: 2 DF
     Route: 048
     Dates: end: 20190507
  13. ARANESP [Concomitant]
     Active Substance: DARBEPOETIN ALFA
  14. RENAGEL [Concomitant]
     Active Substance: SEVELAMER HYDROCHLORIDE
  15. PARACETAMOL [Concomitant]
     Active Substance: ACETAMINOPHEN
  16. AMLODIPINE [Concomitant]
     Active Substance: AMLODIPINE BESYLATE
  17. CELLCEPT [Concomitant]
     Active Substance: MYCOPHENOLATE MOFETIL\MYCOPHENOLATE MOFETIL HYDROCHLORIDE

REACTIONS (2)
  - Hypernatraemia [Recovered/Resolved]
  - Acute kidney injury [Recovered/Resolved with Sequelae]

NARRATIVE: CASE EVENT DATE: 20190502
